FAERS Safety Report 5635732-0 (Version None)
Quarter: 2008Q1

REPORT INFORMATION
  Report Type: 
  Country: None (occurrence: None)
  Receive Date: 20080220
  Receipt Date: 20051108
  Transmission Date: 20080703
  Serious: Yes (Disabling)
  Sender: FDA-Public Use
  Company Number: STI-2008-00418

PATIENT
  Sex: 0

DRUGS (5)
  1. ERYTHROMYCIN [Suspect]
     Indication: ACNE
     Dosage: (1 IN 1 DAYS) TOPICAL
     Route: 061
  2. ORAL PLACEBO [Suspect]
     Dosage: (1 IN 1 DAYS) ORAL
     Route: 048
  3. LORATADINE [Concomitant]
  4. CEPHALEXIN [Concomitant]
  5. MICROGYNON (EUGYNON) [Concomitant]

REACTIONS (1)
  - FIBULA FRACTURE [None]
